FAERS Safety Report 10983666 (Version 1)
Quarter: 2015Q2

REPORT INFORMATION
  Report Type: Spontaneous
  Country: US (occurrence: None)
  Receive Date: 20150402
  Receipt Date: 20150402
  Transmission Date: 20150821
  Serious: Yes (Disabling)
  Sender: FDA-Public Use
  Company Number: None

PATIENT
  Age: 63 Year
  Sex: Female
  Weight: 92.99 kg

DRUGS (16)
  1. ACIPHEX [Suspect]
     Active Substance: RABEPRAZOLE SODIUM
     Indication: GASTROOESOPHAGEAL REFLUX DISEASE
     Route: 048
     Dates: start: 201501
  2. CALCIUM [Concomitant]
     Active Substance: CALCIUM
  3. ATENOLOL. [Concomitant]
     Active Substance: ATENOLOL
  4. COQ10 W/L-CARNITINE [Concomitant]
  5. BABY ASPIRIN [Concomitant]
     Active Substance: ASPIRIN
  6. VITAMIN C [Concomitant]
     Active Substance: ASCORBIC ACID
  7. KRILL OIL [Concomitant]
     Active Substance: DIETARY SUPPLEMENT
  8. SENIOR MULTIVITE [Concomitant]
  9. MAGNESIUM [Concomitant]
     Active Substance: MAGNESIUM
  10. BIOTIN [Concomitant]
     Active Substance: BIOTIN
  11. VITE E [Concomitant]
  12. VIT B COMPLEX [Concomitant]
  13. FLONASE [Concomitant]
     Active Substance: FLUTICASONE PROPIONATE
  14. VITAMIN B12 [Concomitant]
     Active Substance: CYANOCOBALAMIN
  15. VITAMIN D [Concomitant]
     Active Substance: CHOLECALCIFEROL
  16. SOY-MENOPAUSE [Concomitant]

REACTIONS (6)
  - Product substitution issue [None]
  - Cardiac discomfort [None]
  - Diabetes mellitus inadequate control [None]
  - Gastrointestinal disorder [None]
  - Drug ineffective [None]
  - Product quality issue [None]

NARRATIVE: CASE EVENT DATE: 20150202
